FAERS Safety Report 11977013 (Version 1)
Quarter: 2016Q1

REPORT INFORMATION
  Report Type: Spontaneous
  Country: US (occurrence: US)
  Receive Date: 20160129
  Receipt Date: 20160129
  Transmission Date: 20160526
  Serious: No
  Sender: FDA-Public Use
  Company Number: US-PERRIGO-15US002679

PATIENT
  Age: 71 Year
  Sex: Female
  Weight: 95.24 kg

DRUGS (2)
  1. IBUPROFEN 200MG-DIPHENHYDRAMINE CITRATE 38 MG 8K7 [Suspect]
     Active Substance: DIPHENHYDRAMINE HYDROCHLORIDE\IBUPROFEN
     Indication: PAIN
     Dosage: 3 TABLETS, QD
     Route: 048
     Dates: start: 20150301, end: 20150302
  2. IBUPROFEN 200MG-DIPHENHYDRAMINE CITRATE 38 MG 8K7 [Suspect]
     Active Substance: DIPHENHYDRAMINE HYDROCHLORIDE\IBUPROFEN
     Dosage: TOTAL OF 5 TABLETS, QD
     Route: 048
     Dates: start: 20150303, end: 20150304

REACTIONS (3)
  - Accidental overdose [Recovered/Resolved]
  - No adverse event [Recovered/Resolved]
  - Product name confusion [Recovered/Resolved]

NARRATIVE: CASE EVENT DATE: 20150301
